FAERS Safety Report 9099670 (Version 1)
Quarter: 2013Q1

REPORT INFORMATION
  Report Type: Spontaneous
  Country: GR (occurrence: GR)
  Receive Date: 20130214
  Receipt Date: 20130214
  Transmission Date: 20140127
  Serious: Yes (Hospitalization, Other)
  Sender: FDA-Public Use
  Company Number: PHHY2013GR012506

PATIENT
  Age: 56 Year
  Sex: Female

DRUGS (10)
  1. CARBAMAZEPINE [Suspect]
  2. METHOTREXATE [Suspect]
  3. METHYLPREDNISOLONE [Concomitant]
  4. LEVOTHYROXINE [Concomitant]
  5. ACENOCOUMAROL [Concomitant]
  6. FOLIC ACID [Concomitant]
  7. FERROUS SULPHATE [Concomitant]
  8. ACETYLSALICYLIC ACID [Concomitant]
  9. PANTOPRAZOLE [Concomitant]
  10. ALFACALCIDOL [Concomitant]

REACTIONS (9)
  - Bone marrow toxicity [Unknown]
  - Thrombocytopenia [Unknown]
  - Neutropenia [Unknown]
  - Endocarditis bacterial [Unknown]
  - Tachypnoea [Unknown]
  - Cardiac murmur [Unknown]
  - Asthenia [Unknown]
  - Pyrexia [Unknown]
  - Decreased appetite [Unknown]
